FAERS Safety Report 7910648-5 (Version None)
Quarter: 2011Q4

REPORT INFORMATION
  Report Type: 
  Country: None (occurrence: None)
  Receive Date: 20111111
  Receipt Date: 20111104
  Transmission Date: 20120403
  Serious: Yes (Life-Threatening, Hospitalization)
  Sender: FDA-Public Use
  Company Number: NO-ROCHE-1009850

PATIENT
  Sex: Male

DRUGS (4)
  1. LOSARTAN [Concomitant]
     Route: 065
  2. METHOTREXATE [Suspect]
     Indication: RHEUMATOID ARTHRITIS
     Route: 048
     Dates: start: 20061201
  3. TIMOSAN (NORWAY) [Concomitant]
     Route: 047
  4. MABTHERA [Suspect]
     Indication: RHEUMATOID ARTHRITIS
     Dosage: ADMINISTERED ONLY ONCE
     Route: 041
     Dates: start: 20110601

REACTIONS (1)
  - INTERSTITIAL LUNG DISEASE [None]
